FAERS Safety Report 6458594-0 (Version None)
Quarter: 2009Q4

REPORT INFORMATION
  Report Type: 
  Country: None (occurrence: None)
  Receive Date: 20091126
  Receipt Date: 20091116
  Transmission Date: 20100525
  Serious: Yes (Hospitalization, Other)
  Sender: FDA-Public Use
  Company Number: US-ELI_LILLY_AND_COMPANY-US200911004452

PATIENT
  Sex: Female

DRUGS (2)
  1. FORTEO [Suspect]
     Dosage: 20 UG, DAILY (1/D)
     Dates: start: 20081101
  2. CALCIUM                                 /N/A/ [Concomitant]

REACTIONS (6)
  - BLOOD PRESSURE INCREASED [None]
  - COLON CANCER RECURRENT [None]
  - COLONIC OBSTRUCTION [None]
  - INFECTION [None]
  - MALAISE [None]
  - PAIN [None]
